FAERS Safety Report 24701431 (Version 1)
Quarter: 2024Q4

REPORT INFORMATION
  Report Type: Spontaneous
  Country: CN (occurrence: CN)
  Receive Date: 20241205
  Receipt Date: 20241205
  Transmission Date: 20250114
  Serious: Yes (Hospitalization)
  Sender: NOVO NORDISK
  Company Number: CN-NOVOPROD-1326065

PATIENT
  Age: 73 Year
  Sex: Female
  Weight: 68 kg

DRUGS (3)
  1. INSULIN ASPART [Suspect]
     Active Substance: INSULIN ASPART
     Dosage: THE MAXIMUM AMOUNT OF INSULIN 18U BEFORE BREAKFAST AND MAXIMUM AMOUNT BEFORE DINNER 14U
     Route: 058
  2. INSULIN ASPART [Suspect]
     Active Substance: INSULIN ASPART
     Indication: Type 2 diabetes mellitus
     Dosage: 10 IU, BID (BEFORE BREAKFAST AND DINNER)
     Route: 058
  3. INSULIN ASPART [Suspect]
     Active Substance: INSULIN ASPART
     Dosage: 32 IU, QD(18 U BREAKFAST AND BEFORE DINNER 14U )
     Route: 058

REACTIONS (4)
  - Anti-insulin antibody positive [Unknown]
  - Oedema [Unknown]
  - Blood glucose fluctuation [Recovered/Resolved]
  - Blood glucose fluctuation [Recovered/Resolved]

NARRATIVE: CASE EVENT DATE: 20191101
